FAERS Safety Report 9095286 (Version 2)
Quarter: 2013Q1

REPORT INFORMATION
  Report Type: Spontaneous
  Country: JP (occurrence: None)
  Receive Date: 20130123
  Receipt Date: 20130128
  Transmission Date: 20140127
  Serious: Yes (Other)
  Sender: FDA-Public Use
  Company Number: TCI2013A00202

PATIENT
  Sex: Male

DRUGS (1)
  1. TAKEPRON (LANSOPRAZOLE) [Suspect]
     Route: 048

REACTIONS (1)
  - Pleural effusion [None]
